FAERS Safety Report 7282478-1 (Version None)
Quarter: 2011Q1

REPORT INFORMATION
  Report Type: 
  Country: None (occurrence: None)
  Receive Date: 20110126
  Receipt Date: 20110113
  Transmission Date: 20110831
  Serious: Yes (Death)
  Sender: FDA-Public Use
  Company Number: DSA_44680_2011

PATIENT
  Age: 68 Year
  Sex: Male

DRUGS (2)
  1. COCAINE [Suspect]
     Dosage: ORAL
     Route: 048
  2. NIFEDIPINE [Suspect]
     Indication: PRODUCT USED FOR UNKNOWN INDICATION
     Dosage: DF ORAL
     Route: 048

REACTIONS (2)
  - POISONING DELIBERATE [None]
  - COMPLETED SUICIDE [None]
